FAERS Safety Report 13662816 (Version 1)
Quarter: 2017Q2

REPORT INFORMATION
  Report Type: Spontaneous
  Country: US (occurrence: US)
  Receive Date: 20170615
  Receipt Date: 20170615
  Transmission Date: 20170830
  Serious: Yes (Life-Threatening, Hospitalization)
  Sender: FDA-Public Use
  Company Number: None

PATIENT
  Age: 13 Year
  Sex: Female
  Weight: 91.6 kg

DRUGS (1)
  1. DEWITT^S SYRUP [Suspect]
     Active Substance: PIPERAZINE
     Indication: PROPHYLAXIS
     Dosage: OTHER FREQUENCY:ANNUALLY;?
     Route: 048
     Dates: start: 20170611, end: 20170611

REACTIONS (5)
  - Blood creatine phosphokinase increased [None]
  - Chills [None]
  - Pyrexia [None]
  - Electrocardiogram low voltage [None]
  - Shock [None]

NARRATIVE: CASE EVENT DATE: 20170611
